FAERS Safety Report 7052589-4 (Version None)
Quarter: 2010Q4

REPORT INFORMATION
  Report Type: 
  Country: None (occurrence: None)
  Receive Date: 20101019
  Receipt Date: 20101013
  Transmission Date: 20110411
  Serious: Yes (Other)
  Sender: FDA-Public Use
  Company Number: JP-PFIZER INC-2010119142

PATIENT
  Age: 101 Year
  Sex: Female

DRUGS (1)
  1. UNASYN [Suspect]
     Indication: PNEUMONIA
     Dosage: 1.5 G, 3X/DAY
     Route: 041
     Dates: start: 20100915, end: 20100917

REACTIONS (2)
  - CYANOSIS [None]
  - HEPATIC FUNCTION ABNORMAL [None]
